FAERS Safety Report 19570394 (Version 1)
Quarter: 2021Q3

REPORT INFORMATION
  Report Type: Spontaneous
  Country: DK (occurrence: DK)
  Receive Date: 20210716
  Receipt Date: 20210716
  Transmission Date: 20211014
  Serious: Yes (Congenital Anomaly)
  Sender: FDA-Public Use
  Company Number: DK-PFIZER INC-2021823968

PATIENT
  Sex: Male
  Weight: .7 kg

DRUGS (2)
  1. DOSTINEX [Suspect]
     Active Substance: CABERGOLINE
     Indication: PITUITARY TUMOUR BENIGN
     Dosage: 0.25 MG, WEEKLY
     Route: 064
     Dates: start: 20160616, end: 201803
  2. DOSTINEX [Suspect]
     Active Substance: CABERGOLINE
     Dosage: 0.25 MG, WEEKLY
     Route: 064
     Dates: start: 20190405

REACTIONS (5)
  - Maternal exposure during pregnancy [Recovered/Resolved]
  - Scrotal disorder [Unknown]
  - Micropenis [Unknown]
  - Congenital inguinal hernia [Recovered/Resolved]
  - Hypospadias [Recovered/Resolved]

NARRATIVE: CASE EVENT DATE: 20180909
